FAERS Safety Report 5927427-0 (Version None)
Quarter: 2008Q4

REPORT INFORMATION
  Report Type: 
  Country: None (occurrence: None)
  Receive Date: 20081022
  Receipt Date: 20081022
  Transmission Date: 20090506
  Serious: No
  Sender: FDA-Public Use
  Company Number: None

PATIENT
  Sex: Male
  Weight: 96.5254 kg

DRUGS (2)
  1. AMLODIPINE [Suspect]
     Indication: HYPERTENSION
     Dosage: 10MG QD PO
     Route: 048
     Dates: start: 20080915
  2. DYAZIDE [Suspect]
     Indication: HYPERTENSION
     Dosage: 75/50MG QD PO
     Route: 048
     Dates: start: 20070201, end: 20080125

REACTIONS (3)
  - BLOOD PRESSURE INADEQUATELY CONTROLLED [None]
  - DIARRHOEA [None]
  - NAUSEA [None]
